FAERS Safety Report 5397015-6 (Version None)
Quarter: 2007Q3

REPORT INFORMATION
  Report Type: 
  Country: None (occurrence: None)
  Receive Date: 20070725
  Receipt Date: 20070713
  Transmission Date: 20080115
  Serious: Yes (Other)
  Sender: FDA-Public Use
  Company Number: US-SHR-US-2007-018660

PATIENT
  Age: 32 Year
  Sex: Female

DRUGS (5)
  1. BETASERON [Suspect]
     Indication: RELAPSING-REMITTING MULTIPLE SCLEROSIS
     Dosage: 8 MIU, EVERY 2D
     Route: 058
     Dates: start: 20070427
  2. MOTRIN [Concomitant]
     Indication: PREMEDICATION
     Dosage: 400 UNK, UNK
  3. MOTRIN [Concomitant]
     Dosage: 800 MG, UNK
  4. KEPPRA [Concomitant]
     Indication: BRAIN DAMAGE
     Dosage: 250 MG, BED T.
     Dates: start: 20070101
  5. XANAX [Concomitant]
     Dosage: .5 UNK, AS REQ'D

REACTIONS (10)
  - BRAIN DAMAGE [None]
  - CONVULSION [None]
  - HYPOAESTHESIA [None]
  - HYPOAESTHESIA FACIAL [None]
  - INFLUENZA LIKE ILLNESS [None]
  - LOSS OF CONSCIOUSNESS [None]
  - MENTAL IMPAIRMENT [None]
  - MULTIPLE SCLEROSIS [None]
  - PAIN [None]
  - SPEECH DISORDER [None]
